FAERS Safety Report 21994850 (Version 1)
Quarter: 2023Q1

REPORT INFORMATION
  Report Type: Spontaneous
  Country: US (occurrence: None)
  Receive Date: 20230213
  Receipt Date: 20230213
  Transmission Date: 20230417
  Serious: No
  Sender: FDA-Public Use
  Company Number: None

PATIENT
  Age: 58 Year
  Sex: Female
  Weight: 74.39 kg

DRUGS (1)
  1. RINVOQ [Suspect]
     Active Substance: UPADACITINIB
     Indication: Rheumatoid arthritis
     Dosage: OTHER QUANTITY : 1 TABLETY;?FREQUENCY : DAILY;?
     Route: 048
     Dates: start: 202209

REACTIONS (2)
  - Cerebral thrombosis [None]
  - Therapy interrupted [None]
